FAERS Safety Report 10593337 (Version 2)
Quarter: 2015Q2

REPORT INFORMATION
  Report Type: Spontaneous
  Country: US (occurrence: US)
  Receive Date: 20141119
  Receipt Date: 20150519
  Transmission Date: 20150821
  Serious: No
  Sender: FDA-Public Use
  Company Number: US-BAYER-2014-171185

PATIENT
  Age: 63 Year
  Sex: Male

DRUGS (4)
  1. ADEMPAS [Suspect]
     Active Substance: RIOCIGUAT
     Indication: PRODUCT USED FOR UNKNOWN INDICATION
     Dosage: UNK
     Route: 065
  2. LETAIRIS [Suspect]
     Active Substance: AMBRISENTAN
     Indication: PULMONARY FIBROSIS
     Dosage: 5 MG, QD
     Route: 065
     Dates: start: 20141023
  3. LETAIRIS [Suspect]
     Active Substance: AMBRISENTAN
     Indication: CARDIAC VALVE DISEASE
  4. LETAIRIS [Suspect]
     Active Substance: AMBRISENTAN
     Indication: PULMONARY HYPERTENSION

REACTIONS (1)
  - Headache [None]
